FAERS Safety Report 24299507 (Version 1)
Quarter: 2024Q3

REPORT INFORMATION
  Report Type: Spontaneous
  Country: JP (occurrence: JP)
  Receive Date: 20240909
  Receipt Date: 20240909
  Transmission Date: 20241016
  Serious: Yes (Other)
  Sender: PFIZER
  Company Number: JP-ONO-2024JP018432

PATIENT

DRUGS (3)
  1. BRAFTOVI [Suspect]
     Active Substance: ENCORAFENIB
     Indication: Colorectal cancer recurrent
     Dosage: UNK
     Route: 048
     Dates: start: 20240903, end: 20240903
  2. MEKTOVI [Suspect]
     Active Substance: BINIMETINIB
     Indication: Colorectal cancer recurrent
     Dosage: UNK
     Route: 048
     Dates: start: 20240903, end: 20240903
  3. CETUXIMAB [Concomitant]
     Active Substance: CETUXIMAB
     Indication: Colorectal cancer recurrent
     Dosage: UNK
     Route: 065
     Dates: start: 20240903

REACTIONS (1)
  - Serous retinal detachment [Unknown]

NARRATIVE: CASE EVENT DATE: 20240903
